FAERS Safety Report 16745631 (Version 2)
Quarter: 2019Q3

REPORT INFORMATION
  Report Type: Spontaneous
  Country: FR (occurrence: FR)
  Receive Date: 20190827
  Receipt Date: 20190904
  Transmission Date: 20191005
  Serious: Yes (Hospitalization, Other)
  Sender: FDA-Public Use
  Company Number: FR-MYLANLABS-2019M1079261

PATIENT
  Age: 74 Year
  Sex: Male

DRUGS (2)
  1. TRAMADOL MYLAN [Suspect]
     Active Substance: TRAMADOL
     Indication: PROCEDURAL PAIN
     Dosage: 100 MILLIGRAM, BID
     Dates: start: 20190619
  2. TRAMADOL MYLAN [Suspect]
     Active Substance: TRAMADOL
     Dosage: 50 MILLIGRAM

REACTIONS (5)
  - Insomnia [Unknown]
  - Fatigue [Unknown]
  - Feeling jittery [Unknown]
  - Drug dependence [Unknown]
  - Memory impairment [Unknown]

NARRATIVE: CASE EVENT DATE: 2019
